FAERS Safety Report 24085640 (Version 1)
Quarter: 2024Q3

REPORT INFORMATION
  Report Type: Spontaneous
  Country: CN (occurrence: CN)
  Receive Date: 20240712
  Receipt Date: 20240712
  Transmission Date: 20241016
  Serious: Yes (Hospitalization)
  Sender: MERCK
  Company Number: CN-009507513-2407CHN004046

PATIENT
  Age: 60 Year
  Sex: Male
  Weight: 65.2 kg

DRUGS (4)
  1. KEYTRUDA [Suspect]
     Active Substance: PEMBROLIZUMAB
     Indication: Oesophageal carcinoma
     Dosage: 200 MG, ONCE
     Route: 041
     Dates: start: 20240605, end: 20240605
  2. NEDAPLATIN [Suspect]
     Active Substance: NEDAPLATIN
     Indication: Oesophageal carcinoma
     Dosage: 40 MG, ONCE
     Route: 041
     Dates: start: 20240605, end: 20240605
  3. GEMCITABINE HYDROCHLORIDE [Suspect]
     Active Substance: GEMCITABINE HYDROCHLORIDE
     Indication: Oesophageal carcinoma
     Dosage: 1.6 G, ONCE
     Route: 041
     Dates: start: 20240605, end: 20240605
  4. CATEQUENTINIB DIHYDROCHLORIDE [Suspect]
     Active Substance: CATEQUENTINIB DIHYDROCHLORIDE
     Indication: Oesophageal carcinoma
     Dosage: 10 MG, QD
     Route: 048
     Dates: start: 20240531, end: 20240612

REACTIONS (5)
  - Platelet count decreased [Recovering/Resolving]
  - Neutrophil count decreased [Recovering/Resolving]
  - Granulocyte count increased [Unknown]
  - White blood cell count increased [Unknown]
  - White blood cell count decreased [Unknown]

NARRATIVE: CASE EVENT DATE: 20240613
